FAERS Safety Report 18402329 (Version 3)
Quarter: 2021Q3

REPORT INFORMATION
  Report Type: Spontaneous
  Country: US (occurrence: US)
  Receive Date: 20201019
  Receipt Date: 20210707
  Transmission Date: 20211014
  Serious: No
  Sender: FDA-Public Use
  Company Number: US-PFIZER INC-2020398145

PATIENT
  Age: 12 Year
  Sex: Male

DRUGS (4)
  1. GENOTROPIN [Suspect]
     Active Substance: SOMATROPIN
     Indication: HYPOTHYROIDISM
     Dosage: UNK
  2. GENOTROPIN [Suspect]
     Active Substance: SOMATROPIN
     Indication: GROWTH FAILURE
     Dosage: 0.4 MG ALTERNATING WITH 0.6 MG, PER DAY
     Dates: start: 20181208
  3. LEVOTHYROXINE. [Concomitant]
     Active Substance: LEVOTHYROXINE
     Indication: HYPOTHYROIDISM
     Dosage: 75 G, DAILY (TAKE ONE HALF DAILY)
     Route: 048
  4. GENOTROPIN [Suspect]
     Active Substance: SOMATROPIN
     Dosage: 0.4 MG ALTERNATING WITH 0.6 MG, PER DAY

REACTIONS (2)
  - Blood glucose decreased [Unknown]
  - Underweight [Unknown]
